FAERS Safety Report 24383055 (Version 2)
Quarter: 2024Q4

REPORT INFORMATION
  Report Type: Spontaneous
  Country: BR (occurrence: BR)
  Receive Date: 20241001
  Receipt Date: 20241018
  Transmission Date: 20250114
  Serious: Yes (Hospitalization)
  Sender: TEVA
  Company Number: BR-TEVA-VS-3247536

PATIENT
  Age: 27 Year
  Sex: Male

DRUGS (7)
  1. TESTOSTERONE [Suspect]
     Active Substance: TESTOSTERONE
     Indication: Muscle hypertrophy
     Route: 065
  2. AMLODIPINE [Concomitant]
     Active Substance: AMLODIPINE BESYLATE
     Indication: Hypertension
     Dosage: MAXIMUM DOSE
  3. STANOZOLOL [Suspect]
     Active Substance: STANOZOLOL
     Indication: Muscle hypertrophy
     Route: 065
  4. NANDROLONE [Suspect]
     Active Substance: NANDROLONE
     Indication: Muscle hypertrophy
     Route: 065
  5. OXYMETHOLONE [Suspect]
     Active Substance: OXYMETHOLONE
     Indication: Hypertonia
     Route: 065
  6. LOSARTAN [Concomitant]
     Active Substance: LOSARTAN
     Indication: Hypertension
     Dosage: MAXIMUM DOSE
  7. CLONIDINE [Concomitant]
     Active Substance: CLONIDINE
     Indication: Hypertension
     Dosage: MAXIMUM DOSE

REACTIONS (6)
  - End stage renal disease [Unknown]
  - Facial paralysis [Unknown]
  - Hypercalcaemia [Recovering/Resolving]
  - Foreign body reaction [Unknown]
  - Nephrocalcinosis [Unknown]
  - Drug abuse [Unknown]
